FAERS Safety Report 18995286 (Version 2)
Quarter: 2021Q1

REPORT INFORMATION
  Report Type: Report from Study
  Country: JP (occurrence: JP)
  Receive Date: 20210311
  Receipt Date: 20210318
  Transmission Date: 20210420
  Serious: Yes (Death, Hospitalization, Other)
  Sender: FDA-Public Use
  Company Number: JP-SA-2021SA013996

PATIENT
  Age: 79 Year
  Sex: Male
  Weight: 54.8 kg

DRUGS (6)
  1. DECADRON (DEXAMETHASONE SODIUM PHOSPHATE) [Concomitant]
     Active Substance: DEXAMETHASONE SODIUM PHOSPHATE
     Indication: PREMEDICATION
     Dosage: 6.6 MG, Q5W
     Route: 042
     Dates: start: 20170421, end: 20170526
  2. POLARAMINE [Concomitant]
     Active Substance: DEXCHLORPHENIRAMINE MALEATE
     Indication: PREMEDICATION
     Dosage: 5 MG, Q5W
     Route: 042
     Dates: start: 20170421, end: 20170526
  3. FAMOTIDINE. [Concomitant]
     Active Substance: FAMOTIDINE
     Indication: PREMEDICATION
     Dosage: 20 MG, Q5W
     Route: 042
     Dates: start: 20170421, end: 20170526
  4. G LASTA [Concomitant]
     Active Substance: PEGFILGRASTIM
     Indication: PROPHYLAXIS
     Dosage: 3.6 MG, Q5W, START DATE: NEXT DAY AFTER ADMINISTRATION OF JEVTANA
     Route: 058
     Dates: start: 20170422, end: 20170527
  5. CRAVIT [Concomitant]
     Active Substance: LEVOFLOXACIN
     Indication: PROPHYLAXIS
     Dosage: UNK
     Route: 048
     Dates: start: 20170601
  6. CABAZITAXEL [Suspect]
     Active Substance: CABAZITAXEL
     Indication: HORMONE-REFRACTORY PROSTATE CANCER
     Dosage: 31 MG, Q5W
     Route: 041
     Dates: start: 20170421, end: 20170526

REACTIONS (8)
  - White blood cell count decreased [Fatal]
  - Pneumonia [Unknown]
  - Septic shock [Fatal]
  - Decreased appetite [Fatal]
  - Disseminated intravascular coagulation [Fatal]
  - Febrile neutropenia [Fatal]
  - Pyrexia [Fatal]
  - Depressed level of consciousness [Fatal]

NARRATIVE: CASE EVENT DATE: 20170601
